FAERS Safety Report 10642793 (Version 1)
Quarter: 2014Q4

REPORT INFORMATION
  Report Type: Spontaneous
  Country: US (occurrence: None)
  Receive Date: 20141209
  Receipt Date: 20141209
  Transmission Date: 20150529
  Serious: Yes (Other)
  Sender: FDA-Public Use
  Company Number: None

PATIENT
  Age: 48 Year
  Sex: Female
  Weight: 79.38 kg

DRUGS (1)
  1. BRISDELLE [Suspect]
     Active Substance: PAROXETINE MESYLATE
     Indication: MENOPAUSE
     Dosage: 1 PILL AT BEDTIME, TAKEN BY MOUTH
     Route: 048
     Dates: start: 20131209, end: 20141118

REACTIONS (2)
  - Foot fracture [None]
  - Pathological fracture [None]

NARRATIVE: CASE EVENT DATE: 20141024
